FAERS Safety Report 4511794-9 (Version None)
Quarter: 2004Q4

REPORT INFORMATION
  Report Type: 
  Country: None (occurrence: None)
  Receive Date: 20041123
  Receipt Date: 20041123
  Transmission Date: 20050328
  Serious: Yes (Other)
  Sender: FDA-Public Use
  Company Number: None

PATIENT
  Age: 79 Year
  Sex: Male
  Weight: 78.5 kg

DRUGS (14)
  1. TERAZOSIN HCL [Suspect]
  2. LISINOPRIL [Concomitant]
  3. FINASTERIDE [Concomitant]
  4. METFORMIN HCL [Concomitant]
  5. LEVOTHYROXINE SODIUM [Concomitant]
  6. SIMVASTATIN [Concomitant]
  7. TAMSULOSIN HCL [Concomitant]
  8. SIMETHICONE [Concomitant]
  9. ACCU-CHEK COMFORT CURVE-H TEST STRIP [Concomitant]
  10. AZITHROMYCIN [Concomitant]
  11. GATIFLOXACIN [Concomitant]
  12. METRONIDAZOLE [Concomitant]
  13. OMEPRAZOLE [Concomitant]
  14. WARFARIN SODIUM [Concomitant]

REACTIONS (1)
  - DIZZINESS [None]
